FAERS Safety Report 19051145 (Version 1)
Quarter: 2021Q1

REPORT INFORMATION
  Report Type: Spontaneous
  Country: US (occurrence: US)
  Receive Date: 20210324
  Receipt Date: 20210324
  Transmission Date: 20210420
  Serious: No
  Sender: FDA-Public Use
  Company Number: US-ALLERGAN-2047583US

PATIENT
  Age: 40 Year
  Sex: Female

DRUGS (3)
  1. MESALAZINE 1 GM SUP [Suspect]
     Active Substance: MESALAMINE
     Indication: COLITIS
  2. CANASA [Concomitant]
     Active Substance: MESALAMINE
     Dosage: UNK
     Route: 054
     Dates: start: 201901, end: 201908
  3. MESALAZINE 1 GM SUP [Suspect]
     Active Substance: MESALAMINE
     Indication: PROCTITIS
     Dosage: 1 G, QHS
     Route: 054
     Dates: start: 201907

REACTIONS (6)
  - Pain [Not Recovered/Not Resolved]
  - Therapeutic response decreased [Unknown]
  - Product complaint [Unknown]
  - Haematochezia [Unknown]
  - Abdominal distension [Unknown]
  - Flatulence [Not Recovered/Not Resolved]
